FAERS Safety Report 6462268-X (Version None)
Quarter: 2009Q4

REPORT INFORMATION
  Report Type: 
  Country: None (occurrence: None)
  Receive Date: 20091130
  Receipt Date: 20091026
  Transmission Date: 20100525
  Serious: No
  Sender: FDA-Public Use
  Company Number: US-BAYER-200937656NA

PATIENT
  Age: 61 Year
  Sex: Male

DRUGS (4)
  1. AVELOX [Suspect]
     Indication: EAR CONGESTION
     Dosage: UNIT DOSE: 400 MG
     Dates: start: 20091024
  2. PREDNISONE [Concomitant]
  3. LISINOPRIL [Concomitant]
  4. RANITIDINE [Concomitant]

REACTIONS (2)
  - DIZZINESS [None]
  - MYALGIA [None]
